FAERS Safety Report 9319068 (Version 3)
Quarter: 2013Q2

REPORT INFORMATION
  Report Type: Spontaneous
  Country: IT (occurrence: IT)
  Receive Date: 20130530
  Receipt Date: 20130628
  Transmission Date: 20140414
  Serious: Yes (Other)
  Sender: FDA-Public Use
  Company Number: IT-009507513-1305ITA014813

PATIENT
  Age: 61 Year
  Sex: Male
  Weight: 100 kg

DRUGS (3)
  1. ESMERON [Suspect]
     Indication: GENERAL ANAESTHESIA
     Dosage: 130 MG, TOTAL
     Route: 042
     Dates: start: 20130517, end: 20130517
  2. SUCCINYLCHOLINE CHLORIDE [Concomitant]
     Indication: GENERAL ANAESTHESIA
     Dosage: FREQUENCY-TOTAL
  3. SUCCINYLCHOLINE CHLORIDE [Concomitant]
     Indication: ENDOTRACHEAL INTUBATION

REACTIONS (4)
  - Cutaneous vasculitis [Recovered/Resolved]
  - Bronchospasm [Recovered/Resolved]
  - Generalised erythema [Recovered/Resolved]
  - Erythema [Recovered/Resolved]
